FAERS Safety Report 26218080 (Version 1)
Quarter: 2025Q4

REPORT INFORMATION
  Report Type: Spontaneous
  Country: EU (occurrence: EU)
  Receive Date: 20251231
  Receipt Date: 20251231
  Transmission Date: 20260118
  Serious: Yes (Other)
  Sender: REGENERON
  Company Number: EU-BAYER-2025A149607

PATIENT
  Age: 82 Year
  Sex: Female

DRUGS (2)
  1. EYLEA HD [Suspect]
     Active Substance: AFLIBERCEPT
     Indication: Neovascular age-related macular degeneration
     Dosage: 8 MG, ONCE (LEFT EYE), 114.3 MG/ML
     Route: 031
     Dates: start: 202505, end: 2025
  2. EYLEA HD [Suspect]
     Active Substance: AFLIBERCEPT
     Dosage: 8 MG, ONCE (RIGHT EYE), 114.3 MG/ML
     Route: 031
     Dates: start: 202505, end: 2025

REACTIONS (6)
  - Blindness unilateral [Unknown]
  - Endophthalmitis [Unknown]
  - Anterior chamber flare [Unknown]
  - Hypopyon [Unknown]
  - Eye pain [Unknown]
  - Corneal oedema [Unknown]

NARRATIVE: CASE EVENT DATE: 20250101
